FAERS Safety Report 6482490-6 (Version None)
Quarter: 2009Q4

REPORT INFORMATION
  Report Type: 
  Country: None (occurrence: None)
  Receive Date: 20091208
  Receipt Date: 20091001
  Transmission Date: 20100525
  Serious: No
  Sender: FDA-Public Use
  Company Number: US-AMGEN-TCS364433

PATIENT
  Sex: Male
  Weight: 99 kg

DRUGS (8)
  1. ENBREL [Suspect]
     Indication: RHEUMATOID ARTHRITIS
     Route: 058
     Dates: start: 20090715
  2. PREDNISONE [Concomitant]
  3. ZYRTEC [Concomitant]
  4. SINGULAIR [Concomitant]
  5. CELEBREX [Concomitant]
  6. LOTREL [Concomitant]
  7. VICODIN [Concomitant]
     Dates: start: 20090715
  8. SULFASALAZINE [Concomitant]
     Dates: start: 20090301

REACTIONS (3)
  - MUSCULOSKELETAL PAIN [None]
  - NASAL CONGESTION [None]
  - NECK PAIN [None]
